FAERS Safety Report 9852863 (Version 2)
Quarter: 2014Q1

REPORT INFORMATION
  Report Type: Spontaneous
  Country: US (occurrence: US)
  Receive Date: 20140129
  Receipt Date: 20140326
  Transmission Date: 20141002
  Serious: Yes (Hospitalization)
  Sender: FDA-Public Use
  Company Number: US-PFIZER INC-2014025925

PATIENT
  Age: 78 Year
  Sex: Female
  Weight: 60.3 kg

DRUGS (4)
  1. DEPO-MEDROL [Suspect]
     Indication: HIGH FREQUENCY ABLATION
     Dosage: 80 MG, SINGLE
     Route: 037
     Dates: start: 20140109, end: 20140109
  2. BIOTIN [Concomitant]
     Dosage: UNK
  3. ACIDOPHILUS [Concomitant]
     Dosage: UNK
  4. ADVIL [Concomitant]
     Dosage: UNK

REACTIONS (2)
  - Post procedural infection [Not Recovered/Not Resolved]
  - Staphylococcal infection [Not Recovered/Not Resolved]
